FAERS Safety Report 17560422 (Version 4)
Quarter: 2022Q1

REPORT INFORMATION
  Report Type: Spontaneous
  Country: US (occurrence: US)
  Receive Date: 20200319
  Receipt Date: 20220303
  Transmission Date: 20220423
  Serious: No
  Sender: FDA-Public Use
  Company Number: US-PFIZER INC-2018079398

PATIENT
  Age: 61 Year
  Sex: Female

DRUGS (2)
  1. LYRICA [Suspect]
     Active Substance: PREGABALIN
     Indication: Osteoarthritis
     Dosage: 100 MG, UNK
     Route: 048
  2. LYRICA [Suspect]
     Active Substance: PREGABALIN
     Indication: Fibromyalgia
     Dosage: 100 MG, 3X/DAY
     Route: 048
     Dates: start: 20190219

REACTIONS (5)
  - Withdrawal syndrome [Unknown]
  - Panic reaction [Unknown]
  - Pain [Unknown]
  - Rhinorrhoea [Unknown]
  - Anxiety [Unknown]
